FAERS Safety Report 11096711 (Version 1)
Quarter: 2015Q2

REPORT INFORMATION
  Report Type: Spontaneous
  Country: US (occurrence: US)
  Receive Date: 20150507
  Receipt Date: 20150507
  Transmission Date: 20150821
  Serious: No
  Sender: FDA-Public Use
  Company Number: US-BAYER-2015-182563

PATIENT
  Age: 86 Year
  Sex: Female
  Weight: 53 kg

DRUGS (1)
  1. MIRALAX [Suspect]
     Active Substance: POLYETHYLENE GLYCOL 3350
     Indication: CONSTIPATION
     Dosage: 2 TEASPOON, PRN
     Route: 048

REACTIONS (4)
  - Diarrhoea [Unknown]
  - Off label use [None]
  - Abdominal discomfort [Unknown]
  - Nausea [Unknown]
